FAERS Safety Report 24078248 (Version 1)
Quarter: 2024Q3

REPORT INFORMATION
  Report Type: Spontaneous
  Country: US (occurrence: US)
  Receive Date: 20240711
  Receipt Date: 20240711
  Transmission Date: 20241017
  Serious: Yes (Other)
  Sender: PFIZER
  Company Number: US-PFIZER INC-PV202400090369

PATIENT
  Age: 42 Year
  Sex: Female

DRUGS (1)
  1. OXBRYTA [Suspect]
     Active Substance: VOXELOTOR
     Dosage: UNK
     Route: 065

REACTIONS (3)
  - Sickle cell anaemia with crisis [Unknown]
  - Pain [Unknown]
  - Skin ulcer [Unknown]
